FAERS Safety Report 9815652 (Version 3)
Quarter: 2014Q2

REPORT INFORMATION
  Report Type: Report from Study
  Country: AU (occurrence: AU)
  Receive Date: 20140114
  Receipt Date: 20140408
  Transmission Date: 20141212
  Serious: Yes (Death, Hospitalization, Other)
  Sender: FDA-Public Use
  Company Number: PHHY2014AU003227

PATIENT
  Age: 52 Year
  Sex: Male

DRUGS (14)
  1. CLOZARIL [Suspect]
     Dosage: 175 MG, BID
     Route: 048
     Dates: start: 19990906
  2. CLONAZEPAM [Concomitant]
     Dosage: 2 MG, BID
  3. SODIUM VALPROATE [Concomitant]
     Dosage: 1000 MG, BID
  4. HALOPERIDOL [Concomitant]
     Dosage: 10 MG, DAILY
  5. OMEPRAZOLE [Concomitant]
     Dosage: 20 MG, BID
  6. ESOMEPRAZOLE [Concomitant]
     Dosage: 20 MG, BID
  7. SLOW K [Concomitant]
     Dosage: 600 MG, DAILY
  8. AGAROL                             /00080501/ [Concomitant]
     Dosage: 20 ML, BIW
  9. SENOKOT                                 /UNK/ [Concomitant]
     Dosage: 4 DF, BIW
  10. CLEARLAX [Concomitant]
     Dosage: 2 DF, BID
  11. FGF [Concomitant]
     Dosage: 1 DF, QD (1 TABLET, MANE)
  12. MULTIVITAMIN                       /00097801/ [Concomitant]
     Dosage: 1 DF, QD (1 TABLET MANE)
  13. SALBUTAMOL [Concomitant]
     Dosage: 5 MG, BID
     Route: 055
  14. ATROVENT [Concomitant]
     Dosage: 500 UG, BID
     Route: 055

REACTIONS (21)
  - Intestinal ischaemia [Fatal]
  - Pneumonia aspiration [Fatal]
  - Abdominal pain [Unknown]
  - Respiratory distress [Unknown]
  - Abdominal distension [Unknown]
  - Lung consolidation [Unknown]
  - Respiratory disorder [Unknown]
  - Pelvic fluid collection [Unknown]
  - Gastrointestinal disorder [Unknown]
  - Lung infiltration [Unknown]
  - International normalised ratio increased [Unknown]
  - Prothrombin time prolonged [Unknown]
  - Blood albumin decreased [Unknown]
  - Blood creatinine increased [Unknown]
  - Blood sodium decreased [Unknown]
  - Blood urea increased [Unknown]
  - Lymphocyte count decreased [Unknown]
  - Aspartate aminotransferase increased [Unknown]
  - Pneumonia [Unknown]
  - Vomiting [Unknown]
  - Platelet count decreased [Unknown]
